FAERS Safety Report 12460730 (Version 1)
Quarter: 2016Q2

REPORT INFORMATION
  Report Type: Spontaneous
  Country: US (occurrence: US)
  Receive Date: 20160613
  Receipt Date: 20160613
  Transmission Date: 20160815
  Serious: Yes (Hospitalization)
  Sender: FDA-Public Use
  Company Number: US-TEVA-665752USA

PATIENT
  Age: 7 Week
  Sex: Female

DRUGS (1)
  1. TOBRAMYCIN. [Suspect]
     Active Substance: TOBRAMYCIN

REACTIONS (4)
  - Dyspepsia [Unknown]
  - Decreased appetite [Unknown]
  - Drug ineffective [Unknown]
  - Oxygen consumption decreased [Unknown]
